FAERS Safety Report 5298763-9 (Version None)
Quarter: 2007Q2

REPORT INFORMATION
  Report Type: 
  Country: None (occurrence: None)
  Receive Date: 20070417
  Receipt Date: 20070410
  Transmission Date: 20071010
  Serious: Yes (Other)
  Sender: FDA-Public Use
  Company Number: DE-PURDUE-USA_2007_0026970

PATIENT
  Age: 32 Year
  Sex: Female
  Weight: 60 kg

DRUGS (2)
  1. HYDROMORPHONE HCL [Suspect]
     Indication: PAIN
     Dosage: 32 MG, BID
  2. HYDROMORPHONE HCL [Suspect]
     Dosage: 2.6 MG, SEE TEXT

REACTIONS (4)
  - AMENORRHOEA [None]
  - OESTRADIOL DECREASED [None]
  - SECONDARY ADRENOCORTICAL INSUFFICIENCY [None]
  - SECONDARY HYPOGONADISM [None]
